FAERS Safety Report 8991060 (Version 1)
Quarter: 2012Q4

REPORT INFORMATION
  Report Type: 
  Country: US (occurrence: US)
  Receive Date: 20121231
  Receipt Date: 20121231
  Transmission Date: 20130627
  Serious: Yes (Other)
  Sender: FDA-Public Use
  Company Number: US-BRISTOL-MYERS SQUIBB COMPANY-17230855

PATIENT
  Age: 69 Year
  Sex: Female

DRUGS (16)
  1. ABATACEPT SUBQ INJECTION 125MG/ML [Suspect]
     Dosage: 2G71712 EX DATE:Mar14
     Route: 058
  2. ALBUTEROL INHALER [Concomitant]
  3. ADVAIR [Concomitant]
  4. FLONASE [Concomitant]
  5. CELLCEPT [Concomitant]
  6. ASPIRIN [Concomitant]
  7. LYRICA [Concomitant]
  8. HYDROCODONE [Concomitant]
  9. DIOVAN [Concomitant]
  10. MULTIVITAMINS [Concomitant]
  11. NORTRIPTYLINE [Concomitant]
  12. PAXIL [Concomitant]
  13. PROTONIX [Concomitant]
  14. LABETALOL [Concomitant]
  15. CALCIUM [Concomitant]
  16. BACLOFEN [Concomitant]

REACTIONS (2)
  - Arthropathy [Recovering/Resolving]
  - Bronchitis [Not Recovered/Not Resolved]
